FAERS Safety Report 6793130-0 (Version None)
Quarter: 2010Q2

REPORT INFORMATION
  Report Type: 
  Country: None (occurrence: None)
  Receive Date: 20100624
  Receipt Date: 20090803
  Transmission Date: 20101027
  Serious: Yes (Other)
  Sender: FDA-Public Use
  Company Number: US-MYLANLABS-2009S1009495

PATIENT
  Age: 50 Year
  Sex: Female

DRUGS (11)
  1. CLOZAPINE [Suspect]
     Indication: SCHIZOAFFECTIVE DISORDER
     Route: 048
     Dates: start: 20081216, end: 20090610
  2. DEPAKOTE [Concomitant]
     Route: 048
  3. TYLENOL [Concomitant]
     Route: 048
  4. POTASSIUM [Concomitant]
     Route: 048
  5. DAYPRO [Concomitant]
     Route: 048
  6. LASIX [Concomitant]
     Route: 048
  7. ZOCOR [Concomitant]
     Route: 048
  8. PROTONIX [Concomitant]
     Route: 048
  9. ALLEGRA [Concomitant]
     Route: 048
  10. ZYPREXA [Concomitant]
  11. ZYPREXA [Concomitant]

REACTIONS (2)
  - GRANULOCYTOPENIA [None]
  - WHITE BLOOD CELL COUNT DECREASED [None]
